FAERS Safety Report 18818444 (Version 2)
Quarter: 2021Q2

REPORT INFORMATION
  Report Type: Report from Study
  Country: US (occurrence: US)
  Receive Date: 20210201
  Receipt Date: 20210413
  Transmission Date: 20210717
  Serious: Yes (Hospitalization)
  Sender: FDA-Public Use
  Company Number: US-EMD SERONO-9215390

PATIENT
  Sex: Female

DRUGS (4)
  1. MAVENCLAD [Suspect]
     Active Substance: CLADRIBINE
     Indication: MULTIPLE SCLEROSIS
     Dosage: YEAR ONE CYCLE ONE THERAPY
     Route: 048
     Dates: start: 20200212, end: 202002
  2. MAVENCLAD [Suspect]
     Active Substance: CLADRIBINE
     Dosage: YEAR TWO CYCLE ONE THERAPY
     Route: 048
     Dates: start: 20210308, end: 20210312
  3. MAVENCLAD [Suspect]
     Active Substance: CLADRIBINE
     Dosage: YEAR ONE CYCLE TWO THERAPY
     Route: 048
  4. MAVENCLAD [Suspect]
     Active Substance: CLADRIBINE
     Dosage: YEAR TWO CYCLE TWO THERAPY
     Route: 048
     Dates: start: 20210329, end: 20210402

REACTIONS (4)
  - Urinary tract infection [Unknown]
  - Herpes zoster [Unknown]
  - Mental status changes [Unknown]
  - Anxiety [Unknown]

NARRATIVE: CASE EVENT DATE: 2020
